FAERS Safety Report 19257792 (Version 1)
Quarter: 2021Q2

REPORT INFORMATION
  Report Type: Spontaneous
  Country: US (occurrence: US)
  Receive Date: 20210513
  Receipt Date: 20210513
  Transmission Date: 20210717
  Serious: Yes (Other)
  Sender: FDA-Public Use
  Company Number: None

PATIENT
  Age: 70 Year
  Sex: Female
  Weight: 110.25 kg

DRUGS (8)
  1. TRULICITY [Suspect]
     Active Substance: DULAGLUTIDE
     Indication: TYPE 2 DIABETES MELLITUS
     Dosage: ?          QUANTITY:4 INJECTION(S);OTHER FREQUENCY:ONE SHOT WEEKLY;?
     Route: 058
     Dates: start: 20210404, end: 20210502
  2. FAMOTIDINE. [Concomitant]
     Active Substance: FAMOTIDINE
  3. MIRALAX [Concomitant]
     Active Substance: POLYETHYLENE GLYCOL 3350
  4. VIACTIV [Concomitant]
  5. HAWTHORNE BERRY POWDER [Concomitant]
  6. IBUPROFEN. [Concomitant]
     Active Substance: IBUPROFEN
  7. VENTILIN [Concomitant]
  8. MUCINEX [Concomitant]
     Active Substance: GUAIFENESIN

REACTIONS (14)
  - Malaise [None]
  - Hypoaesthesia [None]
  - Eating disorder [None]
  - Tremor [None]
  - Feeling abnormal [None]
  - Eye injury [None]
  - Hypersomnia [None]
  - Insomnia [None]
  - Feeling cold [None]
  - Dizziness [None]
  - Blood glucose decreased [None]
  - Paraesthesia [None]
  - Pain [None]
  - Vision blurred [None]

NARRATIVE: CASE EVENT DATE: 20210509
